APPROVED DRUG PRODUCT: LOTEMAX
Active Ingredient: LOTEPREDNOL ETABONATE
Strength: 0.5%
Dosage Form/Route: SUSPENSION/DROPS;OPHTHALMIC
Application: N020841 | Product #001
Applicant: PHARMOS CORP
Approved: Mar 9, 1998 | RLD: No | RS: No | Type: DISCN